FAERS Safety Report 4501838-2 (Version None)
Quarter: 2004Q4

REPORT INFORMATION
  Report Type: 
  Country: None (occurrence: None)
  Receive Date: 20041115
  Receipt Date: 20041115
  Transmission Date: 20050328
  Serious: Yes (Hospitalization)
  Sender: FDA-Public Use
  Company Number: None

PATIENT
  Age: 54 Year
  Sex: Male
  Weight: 76.4 kg

DRUGS (24)
  1. GLYBURIDE [Suspect]
  2. RANITIDINE [Concomitant]
  3. VALPROIC ACID [Concomitant]
  4. FUROSEMIDE [Concomitant]
  5. SPIRONOLACTONE [Concomitant]
  6. VALACYCLOVIR HCL [Concomitant]
  7. ENOXAPARIN [Concomitant]
  8. WARFARIN SODIUM [Concomitant]
  9. BUPROPION (WELLBUTRIN SR) [Concomitant]
  10. TRAZODONE HCL [Concomitant]
  11. METOPROLOL SUCCINATE [Concomitant]
  12. SIMVASTATIN [Concomitant]
  13. ALBUTEROL ORAL INH [Concomitant]
  14. BACTRIM DS EQUIVALENT [Concomitant]
  15. GLYBURIDE [Concomitant]
  16. HYDROCORTISONE CREAM [Concomitant]
  17. LUBRIDERM LOTION [Concomitant]
  18. HYDROCOR/PRAMOXINE 1% RECTAL FOAM [Concomitant]
  19. FLUNISOLONE 0.025% NASAL SOLN [Concomitant]
  20. CLOTRIMAZOLE 1% CREAM [Concomitant]
  21. CAPSAICIN 0.025 % CREAM [Concomitant]
  22. AMMONIUM LACTATE LOTION 12% [Concomitant]
  23. HYDROCOR/PRAMOXINE 1% RECTAL FOAM [Concomitant]
  24. LISINOPRIL [Concomitant]

REACTIONS (1)
  - HYPOGLYCAEMIA [None]
